FAERS Safety Report 9490673 (Version 1)
Quarter: 2013Q3

REPORT INFORMATION
  Report Type: Spontaneous
  Country: US (occurrence: US)
  Receive Date: 20130830
  Receipt Date: 20130830
  Transmission Date: 20140515
  Serious: Yes (Hospitalization, Other)
  Sender: FDA-Public Use
  Company Number: US-TEVA-429035USA

PATIENT
  Age: 54 Year
  Sex: Female

DRUGS (7)
  1. METFORMIN [Suspect]
     Route: 065
  2. ENALAPRIL [Concomitant]
     Route: 065
  3. GLIMEPIRIDE [Concomitant]
     Route: 065
  4. NIMESULIDE [Concomitant]
     Route: 065
  5. IMIPRAMINE [Concomitant]
     Route: 065
  6. ASPIRIN [Concomitant]
     Route: 065
  7. IBUPROFEN [Concomitant]
     Route: 065

REACTIONS (3)
  - Lactic acidosis [Recovered/Resolved]
  - Atrial fibrillation [Unknown]
  - Renal failure acute [Unknown]
